FAERS Safety Report 12594886 (Version 1)
Quarter: 2016Q3

REPORT INFORMATION
  Report Type: Spontaneous
  Country: CH (occurrence: CH)
  Receive Date: 20160726
  Receipt Date: 20160726
  Transmission Date: 20161109
  Serious: Yes (Life-Threatening, Hospitalization)
  Sender: FDA-Public Use
  Company Number: CH-PFIZER INC-2016345583

PATIENT
  Age: 4 Year
  Sex: Male
  Weight: 20 kg

DRUGS (38)
  1. METHOTREXATE SODIUM. [Suspect]
     Active Substance: METHOTREXATE SODIUM
     Indication: ACUTE MYELOID LEUKAEMIA
     Dosage: 12 MG, ONCE
     Route: 037
     Dates: start: 20160412, end: 20160412
  2. TEICOPLANIN [Concomitant]
     Active Substance: TEICOPLANIN
     Dosage: 1 DF, UNK
     Route: 042
     Dates: start: 20160501, end: 20160507
  3. METAMIZOL [Concomitant]
     Active Substance: METAMIZOLE SODIUM
     Dosage: 1 DF, UNK
     Route: 042
     Dates: start: 20160414, end: 20160515
  4. MEROPENEM. [Concomitant]
     Active Substance: MEROPENEM
     Dosage: 1 DF, UNK
     Route: 042
     Dates: start: 20160412, end: 20160509
  5. ALLOPURINOL. [Concomitant]
     Active Substance: ALLOPURINOL
     Dosage: 1 DF, UNK
     Route: 048
     Dates: start: 20160407, end: 20160416
  6. BACTRIM [Concomitant]
     Active Substance: SULFAMETHOXAZOLE\TRIMETHOPRIM
     Dosage: 2.4 MG/KG, 2X/DAY
     Route: 042
     Dates: start: 201604
  7. PERFALGAN [Concomitant]
     Active Substance: ACETAMINOPHEN
     Dosage: 15 MG/KG, AS NEEDED, MAX. 4X/DAY
     Route: 042
     Dates: start: 20160620
  8. ZOFRAN [Concomitant]
     Active Substance: ONDANSETRON HYDROCHLORIDE
     Dosage: 4 MG, AS NEEDED
  9. CYTARABINE. [Suspect]
     Active Substance: CYTARABINE
     Dosage: 3000 MG/M2, 2X/DAY
     Route: 042
     Dates: start: 20160503, end: 20160505
  10. CYTARABINE. [Suspect]
     Active Substance: CYTARABINE
     Dosage: 30 MG, ONCE
     Route: 037
     Dates: start: 20160601, end: 20160601
  11. ETOPOSID [Suspect]
     Active Substance: ETOPOSIDE
     Indication: ACUTE MYELOID LEUKAEMIA
     Dosage: 150 MG/M2, 1X/DAY
     Route: 042
     Dates: start: 20160417, end: 20160419
  12. PODOMEXEF [Concomitant]
     Active Substance: CEFPODOXIME PROXETIL
     Dosage: 80 MG, 2X/DAY
     Route: 048
     Dates: start: 20160529, end: 20160603
  13. FORTAM [Concomitant]
     Active Substance: CEFTAZIDIME
     Dosage: 1 DF, UNK
     Route: 042
     Dates: start: 20160525, end: 20160529
  14. PREDNISON [Concomitant]
     Active Substance: PREDNISONE
     Dosage: 10 MG, UNK
     Route: 037
     Dates: start: 20160601
  15. MITOXANTRONE [Concomitant]
     Active Substance: MITOXANTRONE HYDROCHLORIDE
     Dosage: 10 MG/M2, 1X/DAY
     Route: 042
     Dates: start: 20160505, end: 20160506
  16. CYTARABINE. [Suspect]
     Active Substance: CYTARABINE
     Dosage: 500 MG/M2, UNK
     Route: 042
     Dates: start: 20160601, end: 20160604
  17. METHOTREXATE SODIUM. [Suspect]
     Active Substance: METHOTREXATE SODIUM
     Dosage: 12 MG, ONCE
     Route: 037
     Dates: start: 20160419, end: 20160419
  18. PODOMEXEF [Concomitant]
     Active Substance: CEFPODOXIME PROXETIL
     Dosage: 80 MG, 2X/DAY
     Route: 048
     Dates: start: 20160423, end: 20160424
  19. CYTARABINE. [Suspect]
     Active Substance: CYTARABINE
     Indication: ACUTE MYELOID LEUKAEMIA
     Dosage: 100 MG/M2, 1X/24H
     Route: 042
     Dates: start: 20160412, end: 20160413
  20. CYTARABINE. [Suspect]
     Active Substance: CYTARABINE
     Dosage: 30 MG, ONCE
     Route: 037
     Dates: start: 20160412, end: 20160412
  21. DAUNORUBICIN [Suspect]
     Active Substance: DAUNORUBICIN
     Indication: ACUTE MYELOID LEUKAEMIA
     Dosage: 80 MG/M2, EVERY 2 DAYS
     Route: 042
     Dates: start: 20160414, end: 20160418
  22. DIFLUCAN [Concomitant]
     Active Substance: FLUCONAZOLE
     Dosage: 200 MG, UNK
     Route: 042
     Dates: start: 201404, end: 20160622
  23. CLEMASTINE [Concomitant]
     Active Substance: CLEMASTINE
     Dosage: 1 DF, UNK
     Route: 042
     Dates: start: 20160413, end: 20160506
  24. MERONEM [Concomitant]
     Active Substance: MEROPENEM
     Dosage: 40 MG/KG, 3X/DAY
     Route: 042
     Dates: start: 20160620
  25. CYTARABINE. [Suspect]
     Active Substance: CYTARABINE
     Dosage: 40 MG, ONCE
     Route: 037
     Dates: start: 20160503, end: 20160503
  26. MORPHIN [Concomitant]
     Active Substance: MORPHINE
     Dosage: 1 DF, UNK
     Route: 042
     Dates: start: 20160426, end: 20160502
  27. CYTARABINE. [Suspect]
     Active Substance: CYTARABINE
     Dosage: 100 MG/M2, 2X/DAY
     Route: 042
     Dates: start: 20160414, end: 20160419
  28. FORTAM [Concomitant]
     Active Substance: CEFTAZIDIME
     Dosage: 1 DF, UNK
     Route: 042
     Dates: start: 20160407, end: 20160412
  29. AMIKACIN [Concomitant]
     Active Substance: AMIKACIN
     Dosage: 1 DF, UNK
     Route: 042
     Dates: start: 20160407, end: 20160412
  30. TEICOPLANIN [Concomitant]
     Active Substance: TEICOPLANIN
     Dosage: UNK
     Route: 042
     Dates: start: 20160514, end: 20160518
  31. METHOTREXATE SODIUM. [Suspect]
     Active Substance: METHOTREXATE SODIUM
     Dosage: 12 MG, ONCE
     Dates: start: 20160601, end: 20160601
  32. AMIKACIN [Concomitant]
     Active Substance: AMIKACIN
     Dosage: 1 DF, UNK
     Route: 042
     Dates: start: 20160525, end: 20160528
  33. NOVALGIN [Concomitant]
     Active Substance: METAMIZOLE SODIUM
     Dosage: 10 MG/KG, AS NEEDED
     Route: 042
     Dates: start: 20160620
  34. IDARUBICIN [Concomitant]
     Active Substance: IDARUBICIN
     Dosage: 7 MG/M2, UNK
     Route: 042
     Dates: start: 20160603, end: 20160605
  35. PREDNISON [Concomitant]
     Active Substance: PREDNISONE
     Dosage: 10 MG, 1X/DAY
     Route: 037
     Dates: start: 20160412, end: 20160419
  36. CYTARABINE. [Suspect]
     Active Substance: CYTARABINE
     Dosage: 30 MG, ONCE
     Route: 037
     Dates: start: 20160419, end: 20160419
  37. FUROSEMID [Concomitant]
     Active Substance: FUROSEMIDE
     Dosage: 1 MMOL, UNK
     Route: 042
     Dates: start: 20160407, end: 20160515
  38. PARACETAMOL [Concomitant]
     Active Substance: ACETAMINOPHEN
     Dosage: 1 DF, AS NEEDED
     Route: 042
     Dates: start: 20160411, end: 20160515

REACTIONS (3)
  - Acute respiratory distress syndrome [Recovered/Resolved]
  - Adrenocortical insufficiency acute [Recovered/Resolved]
  - Septic shock [Recovered/Resolved]

NARRATIVE: CASE EVENT DATE: 20160622
